FAERS Safety Report 21761099 (Version 2)
Quarter: 2022Q4

REPORT INFORMATION
  Report Type: Spontaneous
  Country: DE (occurrence: DE)
  Receive Date: 20221221
  Receipt Date: 20221228
  Transmission Date: 20230112
  Serious: Yes (Other)
  Sender: FDA-Public Use
  Company Number: None

PATIENT
  Age: 75 Year
  Sex: Female
  Weight: 70 kg

DRUGS (4)
  1. PAXLOVID [Suspect]
     Active Substance: NIRMATRELVIR\RITONAVIR
     Indication: COVID-19 treatment
     Dosage: EXACTLY ACCORDING TO THE INSTRUCTIONS IN THE PACKAGE LEAFLET
     Route: 048
     Dates: start: 20221021, end: 20221025
  2. SPIKEVAX [Suspect]
     Active Substance: ELASOMERAN
     Indication: COVID-19 immunisation
     Dosage: UNK
     Route: 030
     Dates: start: 20220422, end: 20220422
  3. METOPROLOL [Concomitant]
     Active Substance: METOPROLOL
     Indication: Essential hypertension
  4. CANDESARTAN [Concomitant]
     Active Substance: CANDESARTAN
     Indication: Essential hypertension

REACTIONS (9)
  - Cardiac failure acute [Recovering/Resolving]
  - Pulmonary embolism [Recovering/Resolving]
  - Thrombosis [Recovered/Resolved with Sequelae]
  - Pelvic venous thrombosis [Recovered/Resolved with Sequelae]
  - Venous thrombosis limb [Recovered/Resolved with Sequelae]
  - Tachycardia [Recovering/Resolving]
  - Dyspnoea exertional [Recovering/Resolving]
  - Productive cough [Unknown]
  - Pulmonary arterial pressure [Unknown]

NARRATIVE: CASE EVENT DATE: 20221031
